FAERS Safety Report 9138230 (Version 1)
Quarter: 2013Q1

REPORT INFORMATION
  Report Type: Spontaneous
  Country: US (occurrence: US)
  Receive Date: 20130305
  Receipt Date: 20130305
  Transmission Date: 20140127
  Serious: Yes (Other)
  Sender: FDA-Public Use
  Company Number: US-AMGEN-USASP2013013366

PATIENT
  Age: 72 Year
  Sex: Female

DRUGS (10)
  1. ENBREL [Suspect]
     Indication: RHEUMATOID ARTHRITIS
     Dosage: 50 MG, QWK
     Route: 058
  2. CALCIUM + VITAMIN D [Concomitant]
     Dosage: UNK
  3. MAGNESIUM [Concomitant]
     Dosage: 400 MG, UNK
  4. VITAMIN D /00107901/ [Concomitant]
     Dosage: 400 UNIT, UNK
  5. FEMARA [Concomitant]
     Dosage: 2.5 MG, UNK
  6. BONIVA [Concomitant]
     Dosage: 2.5 MG, UNK
  7. PERCOCET                           /00446701/ [Concomitant]
     Dosage: 5-325 MG, UNK
  8. CELEXA                             /00582602/ [Concomitant]
     Dosage: 10 MG, UNK
  9. FOLIC ACID [Concomitant]
     Dosage: UNK
  10. METHOTREXATE [Concomitant]
     Dosage: 2.5 MG, UNK

REACTIONS (3)
  - Depression [Unknown]
  - Fatigue [Unknown]
  - Sleep disorder [Unknown]
